FAERS Safety Report 6016903-0 (Version None)
Quarter: 2008Q4

REPORT INFORMATION
  Report Type: 
  Country: None (occurrence: None)
  Receive Date: 20081219
  Receipt Date: 20081206
  Transmission Date: 20090506
  Serious: Yes (Life-Threatening, Hospitalization)
  Sender: FDA-Public Use
  Company Number: A-JP2008-21746

PATIENT
  Age: 60 Year
  Sex: Female
  Weight: 41 kg

DRUGS (15)
  1. TRACLEER [Suspect]
     Indication: PULMONARY ARTERIAL HYPERTENSION
     Dosage: 250 MG, BID, ORAL; 125 MG, BID, ORAL; 62.5 MG, BID, ORAL; 125 MG, BID, ORAL
     Route: 048
     Dates: start: 20080713, end: 20080720
  2. TRACLEER [Suspect]
     Indication: PULMONARY ARTERIAL HYPERTENSION
     Dosage: 250 MG, BID, ORAL; 125 MG, BID, ORAL; 62.5 MG, BID, ORAL; 125 MG, BID, ORAL
     Route: 048
     Dates: start: 20080721, end: 20080802
  3. TRACLEER [Suspect]
     Indication: PULMONARY ARTERIAL HYPERTENSION
     Dosage: 250 MG, BID, ORAL; 125 MG, BID, ORAL; 62.5 MG, BID, ORAL; 125 MG, BID, ORAL
     Route: 048
     Dates: start: 20080803, end: 20080825
  4. TRACLEER [Suspect]
     Indication: PULMONARY ARTERIAL HYPERTENSION
     Dosage: 250 MG, BID, ORAL; 125 MG, BID, ORAL; 62.5 MG, BID, ORAL; 125 MG, BID, ORAL
     Route: 048
     Dates: start: 20080826, end: 20080831
  5. BERAPROST (BERAPROST) [Concomitant]
  6. SILDENAFIL CITRATE [Concomitant]
  7. WARFARIN SODIUM [Concomitant]
  8. FUROSEMIDE [Concomitant]
  9. RABEPRAZOLE SODIIUM (RABEPRAZOLE SODIUM) [Concomitant]
  10. TORSEMIDE [Concomitant]
  11. METILDIGOXIN (METILDIGOXIN) [Concomitant]
  12. ZOLPIDEM TARTRATE [Concomitant]
  13. DOPAMINE HCL [Concomitant]
  14. DOBUTAMIE (DOBUTAMINE HYDROCHLORIDE) [Concomitant]
  15. OXYGEN (OXYGEN) [Concomitant]

REACTIONS (1)
  - PANCYTOPENIA [None]
